FAERS Safety Report 6388649-0 (Version None)
Quarter: 2009Q4

REPORT INFORMATION
  Report Type: 
  Country: None (occurrence: None)
  Receive Date: 20091005
  Receipt Date: 20090923
  Transmission Date: 20100525
  Serious: Yes (Death, Hospitalization)
  Sender: FDA-Public Use
  Company Number: FR-BAYER-200933186GPV

PATIENT
  Age: 84 Year
  Sex: Male

DRUGS (17)
  1. ULTRAVIST 370 [Suspect]
     Indication: COMPUTERISED TOMOGRAM
     Route: 042
     Dates: start: 20090710, end: 20090710
  2. CARDENSIEL [Concomitant]
  3. COZAAR [Concomitant]
  4. CREON [Concomitant]
  5. IMOVANE [Concomitant]
  6. LASILIX [Concomitant]
  7. MEDIATENSYL [Concomitant]
  8. MOPRAL [Concomitant]
  9. PREVISCAN [Concomitant]
  10. TRAMADOL HCL [Concomitant]
  11. XANAX [Concomitant]
  12. LEVEMIR [Concomitant]
  13. NOVONORM [Concomitant]
  14. TORENTAL [Concomitant]
  15. AUGMENTIN [Concomitant]
  16. CALCIPARINE [Concomitant]
  17. FONZILANE (BUFLOMEDIL HYDROCHLORIDE) [Concomitant]

REACTIONS (4)
  - DEATH [None]
  - OEDEMA [None]
  - OLIGURIA [None]
  - RENAL FAILURE [None]
